FAERS Safety Report 8123738-1 (Version None)
Quarter: 2012Q1

REPORT INFORMATION
  Report Type: 
  Country: None (occurrence: None)
  Receive Date: 20120208
  Receipt Date: 20120201
  Transmission Date: 20120608
  Serious: Yes (Other)
  Sender: FDA-Public Use
  Company Number: US-MERCK-1202USA00325

PATIENT
  Age: 84 Year
  Sex: Female
  Weight: 39 kg

DRUGS (1)
  1. SINEMET [Suspect]
     Indication: PARKINSON'S DISEASE
     Route: 048

REACTIONS (3)
  - ADVERSE EVENT [None]
  - APHAGIA [None]
  - WEIGHT DECREASED [None]
